FAERS Safety Report 22317142 (Version 2)
Quarter: 2023Q2

REPORT INFORMATION
  Report Type: Spontaneous
  Country: UA (occurrence: UA)
  Receive Date: 20230514
  Receipt Date: 20230609
  Transmission Date: 20230722
  Serious: Yes (Other)
  Sender: FDA-Public Use
  Company Number: UA-ABBVIE-4765645

PATIENT
  Age: 61 Year
  Sex: Male

DRUGS (2)
  1. VENETOCLAX [Suspect]
     Active Substance: VENETOCLAX
     Indication: Chronic lymphocytic leukaemia
     Dosage: 400 MILLIGRAM
     Route: 048
     Dates: start: 20220922, end: 20230301
  2. VENETOCLAX [Suspect]
     Active Substance: VENETOCLAX
     Indication: Chronic lymphocytic leukaemia
     Route: 048

REACTIONS (1)
  - Richter^s syndrome [Unknown]

NARRATIVE: CASE EVENT DATE: 20230301
